FAERS Safety Report 12411670 (Version 1)
Quarter: 2016Q2

REPORT INFORMATION
  Report Type: Spontaneous
  Country: US (occurrence: None)
  Receive Date: 20160526
  Receipt Date: 20160526
  Transmission Date: 20160815
  Serious: Yes (Other)
  Sender: FDA-Public Use
  Company Number: None

PATIENT
  Age: 50 Year
  Sex: Female
  Weight: 102.06 kg

DRUGS (1)
  1. RITUXIMAB [Suspect]
     Active Substance: RITUXIMAB
     Indication: MULTIPLE SCLEROSIS
     Dosage: 1000MG Q6MO IV
     Route: 042
     Dates: start: 20140819, end: 20160204

REACTIONS (1)
  - Breast neoplasm [None]

NARRATIVE: CASE EVENT DATE: 20160426
